FAERS Safety Report 7913146-8 (Version None)
Quarter: 2011Q4

REPORT INFORMATION
  Report Type: 
  Country: None (occurrence: None)
  Receive Date: 20111114
  Receipt Date: 20111031
  Transmission Date: 20120403
  Serious: Yes (Hospitalization, Other)
  Sender: FDA-Public Use
  Company Number: US-ELI_LILLY_AND_COMPANY-US201008006823

PATIENT
  Sex: Female

DRUGS (1)
  1. FORTEO [Suspect]
     Indication: OSTEOPOROSIS
     Dosage: 20 UG, DAILY (1/D)
     Route: 058
     Dates: start: 20090901

REACTIONS (8)
  - NEUROPATHY PERIPHERAL [None]
  - SHOULDER ARTHROPLASTY [None]
  - MEDICAL DEVICE REMOVAL [None]
  - SKIN DISORDER [None]
  - PYREXIA [None]
  - NEUROPATHIC ARTHROPATHY [None]
  - INFECTION [None]
  - CELLULITIS [None]
